FAERS Safety Report 9132949 (Version 2)
Quarter: 2013Q2

REPORT INFORMATION
  Report Type: Report from Study
  Country: GB (occurrence: GB)
  Receive Date: 20130301
  Receipt Date: 20130418
  Transmission Date: 20140414
  Serious: Yes (Other)
  Sender: FDA-Public Use
  Company Number: GB-NAPPMUNDI-GBR-2013-0013151

PATIENT
  Age: 78 Year
  Sex: Male

DRUGS (7)
  1. OXY CR TAB 5 MG [Suspect]
     Indication: CANCER PAIN
     Dosage: 10 MG, UNK
     Route: 048
     Dates: start: 20130205
  2. OXY CR TAB 5 MG [Suspect]
     Dosage: 5 MG, UNK
     Route: 048
     Dates: start: 20130118
  3. OXY CR TAB 5 MG [Suspect]
     Dosage: 5 MG, UNK
     Route: 048
     Dates: start: 20130123
  4. OXY CR TAB 5 MG [Suspect]
     Dosage: 10 MG, UNK
     Route: 048
     Dates: start: 20130124
  5. OXY CR TAB 5 MG [Suspect]
     Dosage: 10 MG, UNK
     Route: 048
     Dates: start: 20130126
  6. OXY CR TAB 5 MG [Suspect]
     Dosage: 10 MG, UNK
     Route: 048
     Dates: start: 20130131
  7. OXY CR TAB 5 MG [Suspect]
     Dosage: 10 MG, UNK
     Route: 048
     Dates: start: 20130204

REACTIONS (5)
  - Constipation [Not Recovered/Not Resolved]
  - Pneumonia [Recovered/Resolved]
  - Confusional state [Recovered/Resolved]
  - Disorientation [Recovered/Resolved]
  - Muscle contractions involuntary [Recovered/Resolved]
